FAERS Safety Report 9938728 (Version 1)
Quarter: 2014Q1

REPORT INFORMATION
  Report Type: Spontaneous
  Country: US (occurrence: US)
  Receive Date: 20140303
  Receipt Date: 20140303
  Transmission Date: 20141002
  Serious: No
  Sender: FDA-Public Use
  Company Number: US-PFIZER INC-2014054666

PATIENT
  Sex: 0

DRUGS (2)
  1. ADVIL COLD AND SINUS [Suspect]
     Indication: SINUS HEADACHE
     Dosage: UNK
  2. ADVIL COLD AND SINUS [Suspect]
     Indication: NASOPHARYNGITIS

REACTIONS (1)
  - Drug effect incomplete [Unknown]
